FAERS Safety Report 18922455 (Version 1)
Quarter: 2021Q1

REPORT INFORMATION
  Report Type: Spontaneous
  Country: US (occurrence: US)
  Receive Date: 20210222
  Receipt Date: 20210222
  Transmission Date: 20210420
  Serious: No
  Sender: FDA-Public Use
  Company Number: US-AKCEA THERAPEUTICS-2020IS001629

PATIENT
  Age: 45 Year
  Sex: Female
  Weight: 91.2 kg

DRUGS (5)
  1. ISSD (INTEGRATED SYRINGE SAFETY DEVICE) [Suspect]
     Active Substance: DEVICE
  2. TEGSEDI [Suspect]
     Active Substance: INOTERSEN SODIUM
     Indication: HEREDITARY NEUROPATHIC AMYLOIDOSIS
     Route: 058
     Dates: start: 20201124
  3. SERTRALINE HCL [Concomitant]
     Active Substance: SERTRALINE HYDROCHLORIDE
     Route: 048
  4. PANTOPRAZOLE SODIUM. [Concomitant]
     Active Substance: PANTOPRAZOLE SODIUM
     Route: 048
  5. BUPROPION /00700502/ [Concomitant]
     Active Substance: BUPROPION HYDROCHLORIDE
     Route: 048

REACTIONS (11)
  - Influenza like illness [Unknown]
  - Pain [Unknown]
  - Illness [Unknown]
  - Fatigue [Unknown]
  - Nausea [Recovered/Resolved]
  - Injection site erythema [Not Recovered/Not Resolved]
  - Protein urine present [Unknown]
  - Headache [Recovered/Resolved]
  - Adverse drug reaction [Unknown]
  - Visual impairment [Recovered/Resolved]
  - Creatinine urine abnormal [Unknown]

NARRATIVE: CASE EVENT DATE: 20201201
